FAERS Safety Report 11283104 (Version 1)
Quarter: 2015Q3

REPORT INFORMATION
  Report Type: Spontaneous
  Country: US (occurrence: None)
  Receive Date: 20150717
  Receipt Date: 20150717
  Transmission Date: 20151125
  Serious: Yes (Hospitalization)
  Sender: FDA-Public Use
  Company Number: None

PATIENT
  Age: 31 Year
  Sex: Female
  Weight: 55.79 kg

DRUGS (2)
  1. MISOPROSTOL 200 MG [Suspect]
     Active Substance: MISOPROSTOL
     Indication: ABORTION MISSED
     Dosage: 3 PILLS
     Route: 067
     Dates: start: 20150714, end: 20150715
  2. NORCO 10-325 [Concomitant]

REACTIONS (6)
  - Somnolence [None]
  - Blood pressure decreased [None]
  - Haemorrhage [None]
  - Product physical issue [None]
  - Dizziness [None]
  - Off label use [None]

NARRATIVE: CASE EVENT DATE: 20150715
